FAERS Safety Report 7712706-7 (Version None)
Quarter: 2011Q3

REPORT INFORMATION
  Report Type: 
  Country: None (occurrence: None)
  Receive Date: 20110826
  Receipt Date: 20110817
  Transmission Date: 20111222
  Serious: Yes (Hospitalization)
  Sender: FDA-Public Use
  Company Number: US-GLAXOSMITHKLINE-A0817833A

PATIENT
  Age: 43 Year
  Sex: Female
  Weight: 90 kg

DRUGS (6)
  1. METFORMIN HCL [Concomitant]
  2. NOVOLOG [Concomitant]
  3. AVANDIA [Suspect]
     Indication: DIABETES MELLITUS
     Dosage: 8MG PER DAY
     Route: 048
     Dates: start: 20080101, end: 20090301
  4. LANTUS [Concomitant]
  5. LISINOPRIL [Concomitant]
  6. TRAZODONE HYDROCHLORIDE [Concomitant]

REACTIONS (2)
  - MYOCARDIAL INFARCTION [None]
  - HEART RATE INCREASED [None]
